FAERS Safety Report 8446003-1 (Version None)
Quarter: 2012Q2

REPORT INFORMATION
  Report Type: 
  Country: None (occurrence: None)
  Receive Date: 20120618
  Receipt Date: 20120605
  Transmission Date: 20120825
  Serious: Yes (Hospitalization)
  Sender: FDA-Public Use
  Company Number: DE-ROCHE-1076373

PATIENT
  Sex: Female

DRUGS (11)
  1. MABTHERA [Suspect]
     Dosage: UNKNOWN
     Route: 065
     Dates: start: 20100714
  2. PREDNISOLONE [Suspect]
     Indication: RHEUMATOID ARTHRITIS
     Route: 048
  3. FOLSAN [Concomitant]
  4. MABTHERA [Suspect]
     Dosage: UNKNOWN
     Route: 065
     Dates: start: 20090813
  5. METHOTREXATE [Suspect]
     Indication: RHEUMATOID ARTHRITIS
     Route: 048
     Dates: start: 20061201
  6. METHOTREXATE [Suspect]
     Route: 048
     Dates: start: 20080201
  7. TILIDINE [Concomitant]
     Dosage: DRUG NAME: TILIDIN
  8. INSUMAN COMB 25 [Concomitant]
     Indication: TYPE 2 DIABETES MELLITUS
     Dosage: DRUG NAME: INSUMAN COMB
  9. MABTHERA [Suspect]
     Indication: RHEUMATOID ARTHRITIS
     Dosage: UNKNOWN
     Route: 065
     Dates: start: 20080820
  10. CALCIUM [Concomitant]
  11. VITAMIN D [Concomitant]

REACTIONS (2)
  - EMBOLIC CEREBRAL INFARCTION [None]
  - HEMIPARESIS [None]
